FAERS Safety Report 7098465-2 (Version None)
Quarter: 2010Q4

REPORT INFORMATION
  Report Type: 
  Country: None (occurrence: None)
  Receive Date: 20101110
  Receipt Date: 20101110
  Transmission Date: 20110411
  Serious: Yes (Hospitalization)
  Sender: FDA-Public Use
  Company Number: None

PATIENT
  Age: 60 Year
  Sex: Female
  Weight: 64.8644 kg

DRUGS (2)
  1. ATENOLOL [Suspect]
     Indication: HYPERTENSION
     Dosage: 25 MG IN AM, 50 MG IN PM BID PO
     Route: 048
     Dates: start: 20100601, end: 20101015
  2. AMLODIPINE [Suspect]
     Indication: HYPERTENSION
     Dosage: 2.5 MG IN AM, 5MG IN PM BID PO
     Route: 048
     Dates: start: 20100601, end: 20101015

REACTIONS (5)
  - BLOOD PRESSURE SYSTOLIC INCREASED [None]
  - DRUG INEFFECTIVE [None]
  - PRODUCT SUBSTITUTION ISSUE [None]
  - TINNITUS [None]
  - VERTIGO [None]
